FAERS Safety Report 17031546 (Version 1)
Quarter: 2019Q4

REPORT INFORMATION
  Report Type: Spontaneous
  Country: US (occurrence: US)
  Receive Date: 20191113
  Receipt Date: 20191113
  Transmission Date: 20200122
  Serious: Yes (Disabling)
  Sender: FDA-Public Use
  Company Number: None

PATIENT
  Age: 42 Year
  Sex: Female
  Weight: 59.85 kg

DRUGS (1)
  1. ALPRAZOLAM 0.5MG TABLET GENERIC FOR: XANAX [Suspect]
     Active Substance: ALPRAZOLAM
     Indication: POST-TRAUMATIC STRESS DISORDER
     Dosage: ?          QUANTITY:1 TABLET(S);?
     Route: 048
     Dates: start: 20190720, end: 20191001

REACTIONS (9)
  - Heart rate increased [None]
  - Recalled product administered [None]
  - Product contamination physical [None]
  - Product packaging issue [None]
  - Fatigue [None]
  - Headache [None]
  - Heart rate decreased [None]
  - Malaise [None]
  - Autonomic neuropathy [None]

NARRATIVE: CASE EVENT DATE: 20190921
